FAERS Safety Report 18432987 (Version 1)
Quarter: 2020Q4

REPORT INFORMATION
  Report Type: Spontaneous
  Country: BR (occurrence: BR)
  Receive Date: 20201027
  Receipt Date: 20201027
  Transmission Date: 20210114
  Serious: Yes (Other)
  Sender: FDA-Public Use
  Company Number: BR-ALLERGAN-2040380US

PATIENT
  Sex: Female

DRUGS (5)
  1. FRESH TEARS [CARMELLOSE SODIUM] [Suspect]
     Active Substance: CARBOXYMETHYLCELLULOSE SODIUM
     Indication: DRY EYE
     Route: 047
  2. OPTIVE FUSION (CARBOXYMETHYLCELLULOSE SODIUM\GLYCERIN) [Suspect]
     Active Substance: CARBOXYMETHYLCELLULOSE SODIUM\GLYCERIN
     Indication: DRY EYE
     Route: 047
  3. LACRIFILM [Suspect]
     Active Substance: CARBOXYMETHYLCELLULOSE SODIUM
     Indication: DRY EYE
  4. XALATAN [Concomitant]
     Active Substance: LATANOPROST
     Indication: GLAUCOMA
     Dosage: 2 GTT, QHS
     Route: 047
     Dates: start: 2013
  5. FISIOGEL [Suspect]
     Active Substance: SOAP
     Indication: DRY EYE

REACTIONS (4)
  - Corneal disorder [Unknown]
  - Dry eye [Unknown]
  - Reaction to preservatives [Unknown]
  - Ocular hyperaemia [Unknown]
